FAERS Safety Report 17055182 (Version 1)
Quarter: 2019Q4

REPORT INFORMATION
  Report Type: Spontaneous
  Country: US (occurrence: US)
  Receive Date: 20191120
  Receipt Date: 20191120
  Transmission Date: 20200122
  Serious: No
  Sender: FDA-Public Use
  Company Number: US-VERTEX PHARMACEUTICALS-2019-011368

PATIENT
  Age: 36 Year
  Sex: Female

DRUGS (4)
  1. TRIKAFTA [Suspect]
     Active Substance: ELEXACAFTOR\IVACAFTOR\TEZACAFTOR
     Indication: CYSTIC FIBROSIS
     Dosage: 100MG ELEXACAFTOR/ 50MG TEZACAFTOR/ 75MG IVACAFTOR/ 150MG IVACAFTOR, BID WITH FAT CONTAINING FOODS
     Route: 048
     Dates: start: 201911
  2. TOBI PODHALER [Concomitant]
     Active Substance: TOBRAMYCIN
  3. ZENPEP [Concomitant]
     Active Substance: PANCRELIPASE AMYLASE\PANCRELIPASE LIPASE\PANCRELIPASE PROTEASE
  4. TOBRAMYCIN. [Concomitant]
     Active Substance: TOBRAMYCIN

REACTIONS (8)
  - Sinus pain [Unknown]
  - Fatigue [Unknown]
  - Pain [Unknown]
  - Sputum increased [Unknown]
  - Paranasal sinus hypersecretion [Unknown]
  - Cough [Recovering/Resolving]
  - Secretion discharge [Unknown]
  - Flatulence [Unknown]

NARRATIVE: CASE EVENT DATE: 201911
